FAERS Safety Report 9848513 (Version 1)
Quarter: 2014Q1

REPORT INFORMATION
  Report Type: Spontaneous
  Country: US (occurrence: None)
  Receive Date: 20140127
  Receipt Date: 20140127
  Transmission Date: 20141002
  Serious: Yes (Other)
  Sender: FDA-Public Use
  Company Number: None

PATIENT
  Age: 63 Year
  Sex: Female

DRUGS (1)
  1. NEUPRO PATCH 3MG UCB [Suspect]
     Indication: PARKINSON^S DISEASE
     Route: 061
     Dates: start: 20130904, end: 20140116

REACTIONS (2)
  - Application site erythema [None]
  - Application site pruritus [None]
